FAERS Safety Report 19437733 (Version 1)
Quarter: 2021Q2

REPORT INFORMATION
  Report Type: Spontaneous
  Country: US (occurrence: US)
  Receive Date: 20210618
  Receipt Date: 20210618
  Transmission Date: 20210717
  Serious: No
  Sender: FDA-Public Use
  Company Number: US-PFIZER INC-2021566931

PATIENT
  Age: 69 Year
  Sex: Female
  Weight: 63.5 kg

DRUGS (1)
  1. GENOTROPIN [Suspect]
     Active Substance: SOMATROPIN
     Indication: HYPOTHALAMO-PITUITARY DISORDER
     Dosage: 0.3 DAILY

REACTIONS (5)
  - Hypopituitarism [Unknown]
  - Off label use [Unknown]
  - Drug dose omission by device [Unknown]
  - Pituitary-dependent Cushing^s syndrome [Unknown]
  - Device use issue [Unknown]
